FAERS Safety Report 12992829 (Version 3)
Quarter: 2017Q1

REPORT INFORMATION
  Report Type: Spontaneous
  Country: US (occurrence: US)
  Receive Date: 20161202
  Receipt Date: 20170317
  Transmission Date: 20170428
  Serious: Yes (Other)
  Sender: FDA-Public Use
  Company Number: US-ABBVIE-16P-163-1788610-00

PATIENT
  Age: 16 Year
  Sex: Female

DRUGS (3)
  1. PREDNISONE. [Suspect]
     Active Substance: PREDNISONE
     Indication: INFLAMMATION
     Route: 065
  2. HUMIRA [Suspect]
     Active Substance: ADALIMUMAB
     Indication: ANKYLOSING SPONDYLITIS
     Route: 058
  3. HUMIRA [Suspect]
     Active Substance: ADALIMUMAB
     Indication: CROHN^S DISEASE

REACTIONS (16)
  - Deafness unilateral [Recovered/Resolved]
  - Ear infection [Unknown]
  - Inflammation [Unknown]
  - Immunodeficiency [Unknown]
  - Insomnia [Unknown]
  - Rotator cuff syndrome [Unknown]
  - Injection site reaction [Unknown]
  - Impaired healing [Unknown]
  - Irritability [Unknown]
  - Feeling abnormal [Unknown]
  - Ankylosing spondylitis [Unknown]
  - Migraine [Unknown]
  - Sciatica [Unknown]
  - Arthralgia [Unknown]
  - Stress [Unknown]
  - Hunger [Unknown]

NARRATIVE: CASE EVENT DATE: 2016
